FAERS Safety Report 5321079-9 (Version None)
Quarter: 2007Q2

REPORT INFORMATION
  Report Type: 
  Country: None (occurrence: None)
  Receive Date: 20070510
  Receipt Date: 20070508
  Transmission Date: 20071010
  Serious: Yes (Death)
  Sender: FDA-Public Use
  Company Number: US-BRISTOL-MYERS SQUIBB COMPANY-13656129

PATIENT
  Age: 92 Year
  Sex: Male

DRUGS (5)
  1. COUMADIN [Suspect]
     Indication: EJECTION FRACTION DECREASED
     Dosage: WARFARIN 1MG ALSO MENTIONED
     Route: 048
     Dates: start: 19990101, end: 20061212
  2. COUMADIN [Suspect]
     Indication: EJECTION FRACTION DECREASED
     Route: 048
     Dates: end: 20061212
  3. MORPHINE [Concomitant]
     Indication: DISCOMFORT
  4. PHENERGAN HCL [Concomitant]
     Indication: DISCOMFORT
  5. ATIVAN [Concomitant]
     Indication: DISCOMFORT

REACTIONS (2)
  - CARDIAC OUTPUT DECREASED [None]
  - CARDIOGENIC SHOCK [None]
